FAERS Safety Report 8741912 (Version 2)
Quarter: 2013Q4

REPORT INFORMATION
  Report Type: Spontaneous
  Country: CO (occurrence: CO)
  Receive Date: 20120824
  Receipt Date: 20131105
  Transmission Date: 20140711
  Serious: Yes (Hospitalization)
  Sender: FDA-Public Use
  Company Number: CO-MERCK-1208COL002546

PATIENT
  Age: 59 Year
  Sex: Female

DRUGS (3)
  1. VICTRELIS [Suspect]
     Indication: HEPATITIS C
     Dosage: 2400 MG, UNK
     Route: 048
     Dates: start: 20120530
  2. PEG-INTRON [Suspect]
     Indication: HEPATITIS C
     Dosage: 80 MICROGRAM, UNK
     Route: 058
     Dates: start: 20120530
  3. REBETOL [Suspect]
     Dosage: 100 MG, UNK
     Route: 048

REACTIONS (4)
  - Lymphocytosis [Unknown]
  - Bicytopenia [Unknown]
  - Full blood count abnormal [Unknown]
  - Thrombocytopenia [Recovered/Resolved]
